FAERS Safety Report 9426177 (Version 2)
Quarter: 2013Q3

REPORT INFORMATION
  Report Type: Spontaneous
  Country: US (occurrence: US)
  Receive Date: 20130730
  Receipt Date: 20130906
  Transmission Date: 20140515
  Serious: No
  Sender: FDA-Public Use
  Company Number: US-BIOGENIDEC-2013BI069377

PATIENT
  Age: 43 Year
  Sex: Female

DRUGS (1)
  1. TYSABRI [Suspect]
     Indication: MULTIPLE SCLEROSIS
     Route: 042
     Dates: start: 20120926

REACTIONS (7)
  - Pleurisy [Not Recovered/Not Resolved]
  - Muscular weakness [Unknown]
  - Burning sensation [Not Recovered/Not Resolved]
  - Body temperature increased [Recovered/Resolved]
  - Fatigue [Unknown]
  - Multiple sclerosis relapse [Not Recovered/Not Resolved]
  - Headache [Recovered/Resolved]
